FAERS Safety Report 6585451-1 (Version None)
Quarter: 2010Q1

REPORT INFORMATION
  Report Type: 
  Country: None (occurrence: None)
  Receive Date: 20100217
  Receipt Date: 20091008
  Transmission Date: 20100710
  Serious: Yes (Other)
  Sender: FDA-Public Use
  Company Number: B0634162A

PATIENT
  Age: 46 Year
  Sex: Female

DRUGS (2)
  1. LAPATINIB [Suspect]
     Route: 065
     Dates: start: 20080101
  2. CAPECITABINE [Suspect]
     Route: 065
     Dates: start: 20080101

REACTIONS (2)
  - FATIGUE [None]
  - PULMONARY EMBOLISM [None]
